FAERS Safety Report 15267419 (Version 4)
Quarter: 2018Q4

REPORT INFORMATION
  Report Type: Spontaneous
  Country: US (occurrence: US)
  Receive Date: 20180811
  Receipt Date: 20181211
  Transmission Date: 20190204
  Serious: No
  Sender: FDA-Public Use
  Company Number: US-BRISTOL-MYERS SQUIBB COMPANY-BMS-2018-072918

PATIENT
  Sex: Female
  Weight: 89.8 kg

DRUGS (1)
  1. ORENCIA [Suspect]
     Active Substance: ABATACEPT
     Indication: RHEUMATOID ARTHRITIS
     Dosage: 750 MG, Q2WK
     Route: 042
     Dates: start: 201806

REACTIONS (7)
  - Myalgia [Unknown]
  - Pain [Unknown]
  - Injection site swelling [Unknown]
  - Drug ineffective [Unknown]
  - Tendon injury [Unknown]
  - Skin discolouration [Unknown]
  - Rhinorrhoea [Unknown]
